FAERS Safety Report 18899942 (Version 2)
Quarter: 2021Q1

REPORT INFORMATION
  Report Type: Spontaneous
  Country: US (occurrence: US)
  Receive Date: 20210216
  Receipt Date: 20210325
  Transmission Date: 20210420
  Serious: Yes (Other)
  Sender: FDA-Public Use
  Company Number: US-PFIZER INC-2020328072

PATIENT
  Age: 71 Year
  Sex: Female

DRUGS (1)
  1. LYRICA [Suspect]
     Active Substance: PREGABALIN
     Dosage: 100 MG, THRICE A DAY (100 MG ONE CAPSULE THREE TIMES A DAY BY MOUTH)
     Route: 048

REACTIONS (5)
  - Pruritus [Unknown]
  - Pain [Unknown]
  - Intentional product misuse [Unknown]
  - Drug dependence [Unknown]
  - Malaise [Unknown]
